FAERS Safety Report 16785128 (Version 1)
Quarter: 2019Q3

REPORT INFORMATION
  Report Type: Spontaneous
  Country: US (occurrence: US)
  Receive Date: 20190909
  Receipt Date: 20190909
  Transmission Date: 20191005
  Serious: Yes (Hospitalization, Other)
  Sender: FDA-Public Use
  Company Number: US-JNJFOC-20190900590

PATIENT
  Age: 76 Year
  Sex: Male

DRUGS (3)
  1. IMBRUVICA [Suspect]
     Active Substance: IBRUTINIB
     Indication: CHRONIC LYMPHOCYTIC LEUKAEMIA
     Dosage: 420 MG, QD
     Route: 048
     Dates: start: 20180914, end: 20190514
  2. VENETOCLAX. [Suspect]
     Active Substance: VENETOCLAX
     Indication: CHRONIC LYMPHOCYTIC LEUKAEMIA
     Dosage: 400 MG, QD
     Route: 048
     Dates: start: 20180914, end: 20190514
  3. VENETOCLAX. [Suspect]
     Active Substance: VENETOCLAX
     Dosage: 100 MG, QD
     Route: 048
     Dates: start: 20190612

REACTIONS (3)
  - Pancytopenia [Recovering/Resolving]
  - Febrile neutropenia [Recovered/Resolved]
  - Cellulitis [Recovering/Resolving]

NARRATIVE: CASE EVENT DATE: 20190514
